FAERS Safety Report 25237185 (Version 9)
Quarter: 2025Q4

REPORT INFORMATION
  Report Type: Report from Study
  Country: US (occurrence: US)
  Receive Date: 20250425
  Receipt Date: 20251201
  Transmission Date: 20260118
  Serious: Yes (Hospitalization, Other)
  Sender: TAKEDA
  Company Number: US-TAKEDA-2025TUS001925

PATIENT
  Sex: Female

DRUGS (7)
  1. TEDUGLUTIDE [Suspect]
     Active Substance: TEDUGLUTIDE
     Indication: Short-bowel syndrome
     Dosage: 0.4 MILLILITER, QD
     Dates: start: 202412
  2. TEDUGLUTIDE [Suspect]
     Active Substance: TEDUGLUTIDE
     Indication: Abdominal pain upper
     Dosage: 4 MILLIGRAM
  3. TEDUGLUTIDE [Suspect]
     Active Substance: TEDUGLUTIDE
     Indication: Osteoporosis
     Dosage: 0.5 MILLILITER, QD
  4. TEDUGLUTIDE [Suspect]
     Active Substance: TEDUGLUTIDE
  5. OPIUM TINCTURE [Suspect]
     Active Substance: MORPHINE
     Indication: Product used for unknown indication
     Dosage: UNK
  6. BENTYL [Concomitant]
     Active Substance: DICYCLOMINE HYDROCHLORIDE
     Dosage: UNK
  7. BACLOFEN [Concomitant]
     Active Substance: BACLOFEN
     Dosage: UNK

REACTIONS (31)
  - Urinary tract infection [Unknown]
  - Dehydration [Unknown]
  - Neuropathy peripheral [Unknown]
  - Hyperhidrosis [Unknown]
  - Loss of consciousness [Unknown]
  - Feeling abnormal [Unknown]
  - Fall [Unknown]
  - Cerebral haemorrhage [Unknown]
  - Night sweats [Unknown]
  - Dizziness [Unknown]
  - Tremor [Unknown]
  - Chills [Unknown]
  - Head injury [Unknown]
  - Eye haemorrhage [Unknown]
  - Stoma site haemorrhage [Unknown]
  - Product residue present [Unknown]
  - Hormone level abnormal [Unknown]
  - Incorrect dosage administered [Unknown]
  - Skin disorder [Unknown]
  - Musculoskeletal stiffness [Unknown]
  - Muscle spasms [Unknown]
  - Poor venous access [Unknown]
  - Drug ineffective [Unknown]
  - Peripheral swelling [Unknown]
  - Vision blurred [Unknown]
  - Weight decreased [Unknown]
  - Product use issue [Unknown]
  - Haematoma [Unknown]
  - Abnormal faeces [Unknown]
  - Abdominal distension [Unknown]
  - Oedema peripheral [Unknown]

NARRATIVE: CASE EVENT DATE: 20241201
